FAERS Safety Report 4421718-0 (Version None)
Quarter: 2004Q3

REPORT INFORMATION
  Report Type: 
  Country: None (occurrence: None)
  Receive Date: 20040806
  Receipt Date: 20040721
  Transmission Date: 20050211
  Serious: Yes (Hospitalization, Other)
  Sender: FDA-Public Use
  Company Number: USA040773187

PATIENT
  Age: 68 Year
  Sex: Female
  Weight: 76 kg

DRUGS (4)
  1. HUMALOG [Suspect]
     Dosage: 12 U IN THE EVENING
     Dates: start: 19960901
  2. NORVASC [Suspect]
  3. LIPITOR [Concomitant]
  4. METOPROLOL [Concomitant]

REACTIONS (3)
  - BLOOD GLUCOSE FLUCTUATION [None]
  - CORONARY ARTERY SURGERY [None]
  - PHARMACEUTICAL PRODUCT COMPLAINT [None]
